FAERS Safety Report 12121688 (Version 1)
Quarter: 2016Q1

REPORT INFORMATION
  Report Type: Spontaneous
  Country: US (occurrence: US)
  Receive Date: 20160226
  Receipt Date: 20160226
  Transmission Date: 20160526
  Serious: No
  Sender: FDA-Public Use
  Company Number: US-ALLERGAN-1208927US

PATIENT
  Age: 25 Year
  Sex: Female

DRUGS (6)
  1. REFRESH OPTIVE [Suspect]
     Active Substance: CARBOXYMETHYLCELLULOSE SODIUM\GLYCERIN
     Dosage: 1 GTT OU, PRN
     Route: 047
     Dates: start: 20120625
  2. TOPIRAMATE. [Concomitant]
     Active Substance: TOPIRAMATE
     Indication: MIGRAINE
     Dosage: ONE PO BID
     Route: 048
     Dates: start: 201206
  3. REFRESH OPTIVE [Suspect]
     Active Substance: CARBOXYMETHYLCELLULOSE SODIUM\GLYCERIN
     Indication: DRY EYE
     Dosage: 1 GTT, SIX TIMES, RIGHT EYE
     Route: 047
     Dates: start: 20120626, end: 20120626
  4. REFRESH OPTIVE [Suspect]
     Active Substance: CARBOXYMETHYLCELLULOSE SODIUM\GLYCERIN
     Dosage: 1 GTT, BID, LEFT EYE
     Route: 047
     Dates: start: 20120626, end: 20120626
  5. NECON [Concomitant]
     Active Substance: ETHINYL ESTRADIOL\NORETHINDRONE
     Indication: CONTRACEPTION
     Dosage: ON PO QD
     Route: 048
     Dates: start: 2010
  6. RANITIDINE [Concomitant]
     Active Substance: RANITIDINE\RANITIDINE HYDROCHLORIDE
     Indication: GASTROOESOPHAGEAL REFLUX DISEASE
     Dosage: ONE PO BID
     Route: 048
     Dates: start: 201205

REACTIONS (5)
  - Foreign body sensation in eyes [Unknown]
  - Eye pain [Unknown]
  - Eye pruritus [Unknown]
  - Eye discharge [Unknown]
  - Ocular hyperaemia [Unknown]

NARRATIVE: CASE EVENT DATE: 20120626
